FAERS Safety Report 8855142 (Version 2)
Quarter: 2012Q4

REPORT INFORMATION
  Report Type: 
  Country: NL (occurrence: NL)
  Receive Date: 20121023
  Receipt Date: 20121102
  Transmission Date: 20130627
  Serious: Yes (Hospitalization)
  Sender: FDA-Public Use
  Company Number: NL-PFIZER INC-2012258950

PATIENT
  Age: 64 Year
  Sex: Female
  Weight: 59.5 kg

DRUGS (5)
  1. GENOTROPIN [Suspect]
     Indication: GROWTH HORMONE DEFICIENCY
     Dosage: 0.3 mg, 7 injections/week
     Route: 058
     Dates: start: 20010410, end: 20090202
  2. HYDROCORTISONE [Concomitant]
     Indication: ACTH DECREASED
     Dosage: UNK
     Dates: start: 19870715
  3. ALENDRONIC ACID [Concomitant]
     Indication: OSTEOPOROSIS
     Dosage: UNK
     Dates: start: 20020413
  4. OMEPRAZOLE [Concomitant]
     Indication: HEARTBURN
     Dosage: UNK
     Dates: start: 20021017
  5. PAMIDRONIC ACID [Concomitant]
     Indication: OSTEOPOROSIS
     Dosage: UNK
     Dates: start: 20040706

REACTIONS (1)
  - Dizziness [Unknown]
